FAERS Safety Report 8946932 (Version 1)
Quarter: 2012Q4

REPORT INFORMATION
  Report Type: 
  Country: GB (occurrence: GB)
  Receive Date: 20121205
  Receipt Date: 20121205
  Transmission Date: 20130627
  Serious: Yes (Death)
  Sender: FDA-Public Use
  Company Number: GB-UCBSA-072440

PATIENT
  Age: 80 Year
  Sex: Female

DRUGS (18)
  1. CIMZIA [Suspect]
     Indication: RHEUMATOID ARTHRITIS
     Route: 058
     Dates: start: 20110505, end: 20121108
  2. FRUSEMIDE [Concomitant]
     Route: 048
  3. CO-CODAMOL [Concomitant]
  4. ASPIRIN [Concomitant]
  5. AMITRIPTYLINE [Concomitant]
  6. BISOPROLOL [Concomitant]
  7. BUPRENORPHINE [Concomitant]
  8. CALCIFEROL [Concomitant]
  9. CALCIUM CARBONATE [Concomitant]
  10. DIGOXIN [Concomitant]
  11. FERROUS SULPHATE [Concomitant]
     Indication: RHEUMATOID ARTHRITIS
     Route: 048
  12. FERROUS SULPHATE [Concomitant]
     Indication: RHEUMATOID ARTHRITIS
     Route: 048
  13. LACTULOSE [Concomitant]
  14. LANSOPRAZOLE [Concomitant]
     Route: 048
  15. METHOTREXATE [Concomitant]
     Indication: RHEUMATOID ARTHRITIS
     Route: 048
  16. RAMIPRIL [Concomitant]
  17. SITAGLIPTIN [Concomitant]
  18. TEMAZEPAM [Concomitant]
     Route: 048

REACTIONS (1)
  - Pneumonia [Fatal]
